FAERS Safety Report 18468003 (Version 1)
Quarter: 2020Q4

REPORT INFORMATION
  Report Type: Report from Study
  Country: GB (occurrence: GB)
  Receive Date: 20201105
  Receipt Date: 20201105
  Transmission Date: 20210114
  Serious: Yes (Other)
  Sender: FDA-Public Use
  Company Number: GB-MYLANLABS-2020M1092276

PATIENT
  Sex: Female

DRUGS (2)
  1. FULVESTRANT. [Suspect]
     Active Substance: FULVESTRANT
     Indication: BREAST CANCER
     Dosage: 500 MILLIGRAM STANDARD DOSING
     Route: 030
  2. CAPIVASERTIB. [Suspect]
     Active Substance: CAPIVASERTIB
     Indication: BREAST CANCER
     Dosage: 400 MILLIGRAM, BID, ORALLY TWICE A DAY FOR 4..
     Route: 048

REACTIONS (4)
  - Neuropathy peripheral [Unknown]
  - Vaginal haemorrhage [Unknown]
  - Hyperglycaemia [Unknown]
  - Vomiting [Unknown]
